FAERS Safety Report 8115054-9 (Version None)
Quarter: 2012Q1

REPORT INFORMATION
  Report Type: 
  Country: None (occurrence: None)
  Receive Date: 20120206
  Receipt Date: 20120203
  Transmission Date: 20120608
  Serious: Yes (Death)
  Sender: FDA-Public Use
  Company Number: JP-B.I. PHARMACEUTICALS,INC./RIDGEFIELD-2012-BP-02185NB

PATIENT
  Age: 8 Decade
  Sex: Female

DRUGS (2)
  1. ASPIRIN [Suspect]
     Route: 065
  2. PRADAXA [Suspect]
     Indication: ATRIAL FIBRILLATION
     Route: 065

REACTIONS (1)
  - CEREBRAL HAEMORRHAGE [None]
